FAERS Safety Report 6080147-7 (Version None)
Quarter: 2009Q1

REPORT INFORMATION
  Report Type: 
  Country: None (occurrence: None)
  Receive Date: 20090217
  Receipt Date: 20090204
  Transmission Date: 20090719
  Serious: Yes (Other)
  Sender: FDA-Public Use
  Company Number: AU-PFIZER INC-2009165756

PATIENT

DRUGS (1)
  1. DALACIN [Suspect]
     Indication: TOOTH INFECTION
     Dosage: UNK
     Route: 048
     Dates: start: 20080901, end: 20080901

REACTIONS (7)
  - ABDOMINAL DISTENSION [None]
  - CONVULSION [None]
  - DIARRHOEA [None]
  - ERYTHEMA [None]
  - TONGUE DISCOLOURATION [None]
  - VOMITING [None]
  - YELLOW SKIN [None]
